FAERS Safety Report 4497630-8 (Version None)
Quarter: 2004Q4

REPORT INFORMATION
  Report Type: 
  Country: None (occurrence: None)
  Receive Date: 20041105
  Receipt Date: 20041101
  Transmission Date: 20050328
  Serious: Yes (Hospitalization)
  Sender: FDA-Public Use
  Company Number: KII-2001-0012692

PATIENT
  Sex: Male

DRUGS (1)
  1. MS CONTIN [Suspect]
     Indication: PAIN
     Dosage: 100 MG, Q12H

REACTIONS (2)
  - BLOOD GLUCOSE INCREASED [None]
  - INADEQUATE ANALGESIA [None]
